FAERS Safety Report 15324787 (Version 1)
Quarter: 2018Q3

REPORT INFORMATION
  Report Type: Spontaneous
  Country: IN (occurrence: IN)
  Receive Date: 20180822
  Receipt Date: 20180822
  Transmission Date: 20181010
  Serious: Yes (Hospitalization)
  Sender: FDA-Public Use
  Company Number: None

PATIENT
  Age: 32 Year
  Sex: Female
  Weight: 162 kg

DRUGS (2)
  1. OROFER XT [Suspect]
     Active Substance: FERROUS ASCORBATE\FOLIC ACID\ZINC SULFATE
     Indication: VITAMIN SUPPLEMENTATION
     Dosage: ?          QUANTITY:30 TABLET(S);?
     Route: 048
     Dates: start: 20180815, end: 20180816
  2. SHELCAL HD 12 [Concomitant]

REACTIONS (3)
  - Maternal exposure during breast feeding [None]
  - Product physical consistency issue [None]
  - Rash generalised [None]

NARRATIVE: CASE EVENT DATE: 20180817
